FAERS Safety Report 8048788-5 (Version None)
Quarter: 2012Q1

REPORT INFORMATION
  Report Type: 
  Country: None (occurrence: None)
  Receive Date: 20120117
  Receipt Date: 20120109
  Transmission Date: 20120608
  Serious: Yes (Other)
  Sender: FDA-Public Use
  Company Number: US-UCBSA-049422

PATIENT
  Age: 29 Year
  Sex: Female

DRUGS (3)
  1. KEPPRA [Suspect]
     Dosage: 450
     Dates: end: 20030801
  2. KEPPRA [Suspect]
     Indication: EPILEPSY
     Dosage: 500
     Dates: start: 20030801
  3. ORAL CONTRACEPTIVES [Concomitant]

REACTIONS (3)
  - PROLONGED PREGNANCY [None]
  - PREGNANCY ON ORAL CONTRACEPTIVE [None]
  - PREGNANCY [None]
